FAERS Safety Report 5621036-9 (Version None)
Quarter: 2008Q1

REPORT INFORMATION
  Report Type: 
  Country: None (occurrence: None)
  Receive Date: 20080208
  Receipt Date: 20080128
  Transmission Date: 20080703
  Serious: Yes (Other)
  Sender: FDA-Public Use
  Company Number: CA-PFIZER INC-2008010765

PATIENT
  Sex: Female

DRUGS (5)
  1. CHANTIX [Suspect]
     Route: 048
  2. ZOLOFT [Concomitant]
  3. TRAZODONE HCL [Concomitant]
  4. LORAZEPAM [Concomitant]
  5. ASPIRIN [Concomitant]

REACTIONS (17)
  - BACK PAIN [None]
  - BLISTER [None]
  - DIZZINESS [None]
  - DRY MOUTH [None]
  - DYSPNOEA [None]
  - EYE IRRITATION [None]
  - EYE SWELLING [None]
  - HYPOVENTILATION [None]
  - MUSCLE SPASMS [None]
  - NAUSEA [None]
  - PRURITUS [None]
  - PYREXIA [None]
  - SOMNOLENCE [None]
  - SWELLING FACE [None]
  - SWOLLEN TONGUE [None]
  - URTICARIA [None]
  - VOMITING [None]
